FAERS Safety Report 6827286-8 (Version None)
Quarter: 2010Q3

REPORT INFORMATION
  Report Type: 
  Country: None (occurrence: None)
  Receive Date: 20100709
  Receipt Date: 20100701
  Transmission Date: 20110219
  Serious: Yes (Other)
  Sender: FDA-Public Use
  Company Number: GB-MPIJNJ-2010-03336

PATIENT

DRUGS (2)
  1. VELCADE [Suspect]
     Indication: PRODUCT USED FOR UNKNOWN INDICATION
     Route: 065
  2. METHYLPREDNISOLONE [Concomitant]

REACTIONS (3)
  - MOOD SWINGS [None]
  - NIGHTMARE [None]
  - PANIC ATTACK [None]
